FAERS Safety Report 8887516 (Version 1)
Quarter: 2012Q4

REPORT INFORMATION
  Report Type: Spontaneous
  Country: US (occurrence: None)
  Receive Date: 20121101
  Receipt Date: 20121101
  Transmission Date: 20130627
  Serious: Yes (Hospitalization)
  Sender: FDA-Public Use
  Company Number: None

PATIENT
  Age: 50 Year
  Sex: Male
  Weight: 92.5 kg

DRUGS (9)
  1. COUMADIN [Suspect]
     Indication: DVT
     Route: 048
  2. COUMADIN [Suspect]
     Indication: PE
     Route: 048
  3. COLACE [Concomitant]
  4. VIT D [Concomitant]
  5. AMLODIPINE [Concomitant]
  6. RANITIDINE [Concomitant]
  7. SEVELAMER [Concomitant]
  8. TYLENOL [Concomitant]
  9. MIRALAX [Concomitant]

REACTIONS (6)
  - Contusion [None]
  - Erosive oesophagitis [None]
  - Gastritis [None]
  - Metabolic encephalopathy [None]
  - Azotaemia [None]
  - Infection [None]
